FAERS Safety Report 12500573 (Version 2)
Quarter: 2016Q3

REPORT INFORMATION
  Report Type: Report from Study
  Country: RO (occurrence: RO)
  Receive Date: 20160627
  Receipt Date: 20160706
  Transmission Date: 20161109
  Serious: Yes (Death, Other)
  Sender: FDA-Public Use
  Company Number: RO-ABBVIE-16P-135-1661170-00

PATIENT
  Age: 81 Year
  Sex: Female

DRUGS (3)
  1. VIREGYT K [Concomitant]
     Indication: PARKINSON^S DISEASE
     Route: 048
  2. DUODOPA [Suspect]
     Active Substance: CARBIDOPA\LEVODOPA
     Indication: PARKINSON^S DISEASE
     Dosage: MD 5 ML, CR 2.3 ML, ED 1.4 ML
     Route: 050
     Dates: start: 20100507
  3. ISICOM [Concomitant]
     Active Substance: CARBIDOPA\LEVODOPA
     Indication: PARKINSON^S DISEASE
     Dosage: 0-0-2/DAY
     Route: 048

REACTIONS (2)
  - Death [Fatal]
  - Metastases to liver [Unknown]

NARRATIVE: CASE EVENT DATE: 20160704
